FAERS Safety Report 7996212-0 (Version None)
Quarter: 2011Q4

REPORT INFORMATION
  Report Type: 
  Country: None (occurrence: None)
  Receive Date: 20111220
  Receipt Date: 20111215
  Transmission Date: 20120403
  Serious: Yes (Other)
  Sender: FDA-Public Use
  Company Number: US-PFIZER INC-2011305712

PATIENT
  Age: 29 Year
  Sex: Male

DRUGS (4)
  1. ALPRAZOLAM [Suspect]
     Dosage: UNK
  2. OXYMORPHONE [Suspect]
     Dosage: UNK
  3. OXYCODONE HCL [Suspect]
     Dosage: UNK
  4. MEPROBAMATE [Suspect]
     Dosage: UNK

REACTIONS (1)
  - TOXICITY TO VARIOUS AGENTS [None]
